FAERS Safety Report 9238565 (Version 2)
Quarter: 2013Q2

REPORT INFORMATION
  Report Type: Spontaneous
  Country: US (occurrence: None)
  Receive Date: 20130416
  Receipt Date: 20130425
  Transmission Date: 20140414
  Serious: Yes (Hospitalization, Other)
  Sender: FDA-Public Use
  Company Number: HT-2013-700-0013

PATIENT
  Age: 86 Year
  Sex: Male

DRUGS (4)
  1. FLUTICASONE PROPIONATE [Suspect]
     Indication: NASAL CONGESTION
     Route: 006
     Dates: start: 20130408, end: 20130411
  2. HUMALOG MIX [Suspect]
     Route: 058
  3. HUMALOG [Concomitant]
  4. LANTUS [Concomitant]

REACTIONS (2)
  - Pneumonia [None]
  - Hyperglycaemia [None]
